FAERS Safety Report 20490973 (Version 2)
Quarter: 2022Q1

REPORT INFORMATION
  Report Type: Spontaneous
  Country: JP (occurrence: JP)
  Receive Date: 20220218
  Receipt Date: 20220318
  Transmission Date: 20220423
  Serious: Yes (Other)
  Sender: FDA-Public Use
  Company Number: JP-GLAXOSMITHKLINE-JP2022JPN026864

PATIENT
  Age: 57 Year
  Sex: Male
  Weight: 74 kg

DRUGS (12)
  1. ZOVIRAX [Suspect]
     Active Substance: ACYCLOVIR
     Dosage: 200 MG, QD, AFTER BREAKFAST
  2. AMLODIPINE BESYLATE [Concomitant]
     Active Substance: AMLODIPINE BESYLATE
     Dosage: 5 MG, QD, AFTER BREAKFAST
  3. METFORMIN HYDROCHLORIDE [Concomitant]
     Active Substance: METFORMIN HYDROCHLORIDE
     Dosage: 250 MG, TID, AFTER EACH MEAL
  4. SITAGLIPTIN PHOSPHATE [Concomitant]
     Active Substance: SITAGLIPTIN PHOSPHATE
     Dosage: 25 MG, QD, AFTER BREAKFAST
  5. LANSOPRAZOLE-OD TABLETS [Concomitant]
     Dosage: 15 MG, QD, AFTER BREAKFAST
  6. SULFAMETHOXAZOLE + TRIMETHOPRIM COMBINATION DRUG [Concomitant]
     Dosage: 1 DF, QD, AFTER BREAKFAST
  7. FLUCONAZOLE [Concomitant]
     Active Substance: FLUCONAZOLE
     Dosage: 200 MG, QD, AFTER BREAKFAST
  8. CYCLOPHOSPHAMIDE [Concomitant]
     Active Substance: CYCLOPHOSPHAMIDE
     Indication: Lymphoma
     Dosage: UNK
  9. ETOPOSIDE [Concomitant]
     Active Substance: ETOPOSIDE
     Indication: Lymphoma
     Dosage: UNK
  10. CYTARABINE [Concomitant]
     Active Substance: CYTARABINE
     Indication: Lymphoma
     Dosage: UNK
  11. DEXAMETHASONE [Concomitant]
     Active Substance: DEXAMETHASONE
     Indication: Lymphoma
     Dosage: UNK
  12. RITUXIMAB [Concomitant]
     Active Substance: RITUXIMAB
     Indication: Lymphoma
     Dosage: UNK

REACTIONS (11)
  - Gastroenteritis norovirus [Unknown]
  - Nausea [Unknown]
  - Vomiting [Unknown]
  - Feeding disorder [Unknown]
  - Hyperglycaemia [Unknown]
  - Abdominal pain [Unknown]
  - Malaise [Unknown]
  - Diarrhoea [Unknown]
  - Inappropriate schedule of product administration [Unknown]
  - Prescribed underdose [Unknown]
  - Product dose omission issue [Unknown]
